APPROVED DRUG PRODUCT: SODIUM TETRADECYL SULFATE
Active Ingredient: SODIUM TETRADECYL SULFATE
Strength: 60MG/2ML (30MG/ML)
Dosage Form/Route: INJECTABLE;INJECTION
Application: A209937 | Product #001 | TE Code: AP
Applicant: HIKMA PHARMACEUTICALS USA INC
Approved: Dec 9, 2019 | RLD: No | RS: No | Type: RX